FAERS Safety Report 23994706 (Version 1)
Quarter: 2024Q2

REPORT INFORMATION
  Report Type: Report from Study
  Country: GR (occurrence: GR)
  Receive Date: 20240620
  Receipt Date: 20240620
  Transmission Date: 20240716
  Serious: Yes (Other)
  Sender: FDA-Public Use
  Company Number: GR-JNJFOC-20240632101

PATIENT

DRUGS (3)
  1. DARZALEX [Suspect]
     Active Substance: DARATUMUMAB
     Indication: Plasma cell myeloma
     Dosage: ON DAYS 1, 8,?15, AND 22 IN CYCLES 12, ON DAYS 1 AND 15 IN CYCLES 36, AND ON DAY 1 FROM CYCLE 7 ON
     Route: 042
  2. IXAZOMIB [Suspect]
     Active Substance: IXAZOMIB
     Indication: Plasma cell myeloma
     Dosage: ON DAYS 1, 8, AND 15
     Route: 048
  3. DEXAMETHASONE [Suspect]
     Active Substance: DEXAMETHASONE
     Indication: Plasma cell myeloma
     Dosage: ON DAYS 1, 2, 8, 9, 15, 16, 22, AND 23
     Route: 048

REACTIONS (19)
  - Thrombocytopenia [Unknown]
  - Pneumonia [Unknown]
  - Diarrhoea [Unknown]
  - Anaemia [Unknown]
  - Fatigue [Unknown]
  - Nausea [Unknown]
  - Dyspnoea [Unknown]
  - Oedema peripheral [Unknown]
  - Pyrexia [Unknown]
  - Urinary tract infection [Unknown]
  - Bronchitis [Unknown]
  - Hyperglycaemia [Unknown]
  - Neuropathy peripheral [Unknown]
  - Insomnia [Unknown]
  - Cough [Unknown]
  - Back pain [Unknown]
  - Arthralgia [Unknown]
  - Constipation [Unknown]
  - Rash [Unknown]
